FAERS Safety Report 5133187-6 (Version None)
Quarter: 2006Q4

REPORT INFORMATION
  Report Type: 
  Country: None (occurrence: None)
  Receive Date: 20061023
  Receipt Date: 20060712
  Transmission Date: 20070319
  Serious: Yes (Other)
  Sender: FDA-Public Use
  Company Number: US-ABBOTT-06P-163-0338800-00

PATIENT
  Sex: Female

DRUGS (2)
  1. DEPAKOTE [Suspect]
     Indication: DRUG USE FOR UNKNOWN INDICATION
     Dates: start: 20060619, end: 20060619
  2. DEPAKOTE [Suspect]
     Dates: start: 20060620, end: 20060622

REACTIONS (6)
  - ABORTION INDUCED [None]
  - BLOOD IRON DECREASED [None]
  - DRUG EXPOSURE DURING PREGNANCY [None]
  - NAUSEA [None]
  - UNINTENDED PREGNANCY [None]
  - VOMITING IN PREGNANCY [None]
